FAERS Safety Report 10076041 (Version 1)
Quarter: 2014Q2

REPORT INFORMATION
  Report Type: Spontaneous
  Country: US (occurrence: None)
  Receive Date: 20140410
  Receipt Date: 20140410
  Transmission Date: 20141212
  Serious: Yes (Other)
  Sender: FDA-Public Use
  Company Number: AUR-APL-2014-04164

PATIENT
  Sex: 0

DRUGS (1)
  1. METOPROLOL (METOPROLOL) [Suspect]
     Indication: HYPERTENSION

REACTIONS (5)
  - Drug ineffective [None]
  - Product measured potency issue [None]
  - Product substitution issue [None]
  - Product quality issue [None]
  - Blood pressure increased [None]
